FAERS Safety Report 8825909 (Version 1)
Quarter: 2012Q4

REPORT INFORMATION
  Report Type: 
  Country: DK (occurrence: DK)
  Receive Date: 20121005
  Receipt Date: 20121005
  Transmission Date: 20130627
  Serious: Yes (Congenital Anomaly, Other)
  Sender: FDA-Public Use
  Company Number: DK-ELI_LILLY_AND_COMPANY-DK201209007733

PATIENT
  Age: 0 Year
  Sex: Female

DRUGS (1)
  1. FONTEX [Suspect]
     Indication: DEPRESSION
     Dosage: UNK, unknown
     Route: 064

REACTIONS (4)
  - Craniosynostosis [Not Recovered/Not Resolved]
  - Growth accelerated [Not Recovered/Not Resolved]
  - Connective tissue disorder [Not Recovered/Not Resolved]
  - Foetal exposure during pregnancy [Recovered/Resolved]
